FAERS Safety Report 7939455-4 (Version None)
Quarter: 2011Q4

REPORT INFORMATION
  Report Type: 
  Country: None (occurrence: None)
  Receive Date: 20111125
  Receipt Date: 20111114
  Transmission Date: 20120403
  Serious: Yes (Other)
  Sender: FDA-Public Use
  Company Number: FR-ROCHE-1013987

PATIENT
  Age: 86 Year
  Sex: Female

DRUGS (8)
  1. AUGMENTIN [Concomitant]
  2. STABLON [Concomitant]
     Indication: DEPRESSION
  3. TANAKAN (FRANCE) [Concomitant]
  4. BONIVA [Suspect]
     Indication: OSTEOPOROSIS
     Dates: start: 20110501
  5. SERMION [Concomitant]
  6. NOOTROPYL [Concomitant]
  7. SOLUPRED (FRANCE) [Concomitant]
     Dosage: SOLUPRED 20 ONE INTAKE ONLY
  8. SEREVENT [Concomitant]

REACTIONS (9)
  - HEADACHE [None]
  - PYREXIA [None]
  - PAIN IN JAW [None]
  - LYMPHADENOPATHY [None]
  - OROPHARYNGEAL PAIN [None]
  - RASH [None]
  - CHEILITIS [None]
  - FACIAL PAIN [None]
  - SWELLING [None]
